FAERS Safety Report 8017694-4 (Version None)
Quarter: 2012Q1

REPORT INFORMATION
  Report Type: 
  Country: None (occurrence: None)
  Receive Date: 20120103
  Receipt Date: 20111221
  Transmission Date: 20120608
  Serious: Yes (Other)
  Sender: FDA-Public Use
  Company Number: CA-JNJFOC-20111212222

PATIENT
  Sex: Female
  Weight: 82 kg

DRUGS (5)
  1. IMURAN [Concomitant]
  2. IBUPROFEN (ADVIL) [Concomitant]
     Indication: PAIN
  3. REMICADE [Suspect]
     Indication: CROHN'S DISEASE
     Route: 042
     Dates: start: 20100701
  4. TALWIN NOS [Concomitant]
     Indication: PAIN
  5. ACETAMINOPHEN [Concomitant]
     Indication: PAIN

REACTIONS (1)
  - GASTRIC ULCER [None]
